FAERS Safety Report 7805372-3 (Version None)
Quarter: 2011Q4

REPORT INFORMATION
  Report Type: 
  Country: None (occurrence: None)
  Receive Date: 20111010
  Receipt Date: 20110930
  Transmission Date: 20120403
  Serious: Yes (Hospitalization)
  Sender: FDA-Public Use
  Company Number: BR-ASTRAZENECA-2011SE59319

PATIENT
  Age: 67 Year
  Sex: Male
  Weight: 70 kg

DRUGS (2)
  1. ATACAND HCT [Suspect]
     Indication: HYPERTENSION
     Dosage: 16/12.5 MG DAILY
     Route: 048
     Dates: start: 20100101, end: 20110901
  2. GLIMEPIRIDE [Concomitant]
     Indication: DIABETES MELLITUS
     Route: 048
     Dates: start: 20080101

REACTIONS (3)
  - DRUG INEFFECTIVE [None]
  - BLADDER NEOPLASM [None]
  - BLOOD PRESSURE INCREASED [None]
